FAERS Safety Report 14742852 (Version 1)
Quarter: 2018Q2

REPORT INFORMATION
  Report Type: Spontaneous
  Country: JP (occurrence: JP)
  Receive Date: 20180410
  Receipt Date: 20180410
  Transmission Date: 20180711
  Serious: Yes (Other)
  Sender: FDA-Public Use
  Company Number: JP-ALLERGAN-1808955US

PATIENT
  Age: 70 Year
  Sex: Male

DRUGS (1)
  1. BOTOX [Suspect]
     Active Substance: ONABOTULINUMTOXINA
     Indication: MUSCLE SPASTICITY
     Dosage: 350 UNITS, SINGLE
     Route: 030
     Dates: start: 20180206, end: 20180206

REACTIONS (7)
  - Tension [Unknown]
  - Injection site pain [Unknown]
  - Blood pressure decreased [Recovered/Resolved]
  - Depressed level of consciousness [Recovered/Resolved]
  - Syncope [Recovered/Resolved]
  - Yawning [Recovered/Resolved]
  - Pallor [Recovered/Resolved]

NARRATIVE: CASE EVENT DATE: 20180206
